FAERS Safety Report 5933665-3 (Version None)
Quarter: 2008Q4

REPORT INFORMATION
  Report Type: 
  Country: None (occurrence: None)
  Receive Date: 20081024
  Receipt Date: 20081015
  Transmission Date: 20090506
  Serious: Yes (Other)
  Sender: FDA-Public Use
  Company Number: 2008SP019129

PATIENT
  Sex: Female

DRUGS (4)
  1. CLARITIN REDITABS [Suspect]
     Indication: RHINITIS ALLERGIC
     Dosage: 10 MG;QD;PO
     Route: 048
     Dates: start: 20080905, end: 20080911
  2. DEPAKENE [Concomitant]
  3. MOBIC [Concomitant]
  4. MUCOSTA [Concomitant]

REACTIONS (1)
  - CONVULSION [None]
